FAERS Safety Report 25265162 (Version 1)
Quarter: 2025Q2

REPORT INFORMATION
  Report Type: Report from Study
  Country: PA (occurrence: PA)
  Receive Date: 20250502
  Receipt Date: 20250502
  Transmission Date: 20250716
  Serious: Yes (Hospitalization)
  Sender: NOVARTIS
  Company Number: PA-002147023-NVSC2025PA071344

PATIENT
  Sex: Male

DRUGS (2)
  1. EXFORGE HCT [Suspect]
     Active Substance: AMLODIPINE BESYLATE\HYDROCHLOROTHIAZIDE\VALSARTAN
     Indication: Hypertension
     Dosage: 1 DOSAGE FORM (10/320/25 MG), QD
     Route: 048
  2. EXFORGE [Suspect]
     Active Substance: AMLODIPINE BESYLATE\VALSARTAN
     Indication: Hypertension
     Dosage: 1 DOSAGE FORM (10/160 MG), QD
     Route: 048

REACTIONS (6)
  - Hypotension [Recovered/Resolved]
  - Cerebrovascular accident [Unknown]
  - Blood pressure increased [Unknown]
  - Dehydration [Unknown]
  - Syncope [Unknown]
  - Cardiac disorder [Unknown]
